FAERS Safety Report 14321476 (Version 1)
Quarter: 2017Q4

REPORT INFORMATION
  Report Type: Spontaneous
  Country: GB (occurrence: GB)
  Receive Date: 20171223
  Receipt Date: 20171223
  Transmission Date: 20180321
  Serious: Yes (Other)
  Sender: FDA-Public Use
  Company Number: GB-CIPLA LTD.-2017GB24964

PATIENT

DRUGS (4)
  1. NAPROXEN. [Suspect]
     Active Substance: NAPROXEN
     Indication: RHEUMATIC DISORDER
     Dosage: 500 MG, PER DAY
     Route: 065
  2. IBUPROFEN. [Suspect]
     Active Substance: IBUPROFEN
     Indication: RHEUMATIC DISORDER
     Dosage: 200 MG, PER DAY, HALF A TABLET IN THE MORNING AND OTHER HALF IN THE EVENING
     Route: 065
     Dates: start: 2017, end: 2017
  3. THYROXINE [Concomitant]
     Active Substance: LEVOTHYROXINE
     Indication: THYROID DISORDER
     Dosage: 75 MG, PER DAY
     Route: 065
  4. LYRICA [Concomitant]
     Active Substance: PREGABALIN
     Indication: FIBROMYALGIA
     Dosage: 50 MG, PER DAY, AT NIGHT
     Route: 065

REACTIONS (5)
  - Contraindicated drug prescribed [Recovered/Resolved]
  - Urticaria [Recovered/Resolved]
  - Hypersensitivity [Recovered/Resolved]
  - Swelling face [Recovered/Resolved]
  - Intercepted medication error [Recovered/Resolved]
